FAERS Safety Report 7861676-X (Version None)
Quarter: 2011Q4

REPORT INFORMATION
  Report Type: 
  Country: None (occurrence: None)
  Receive Date: 20111027
  Receipt Date: 20111019
  Transmission Date: 20120403
  Serious: Yes (Hospitalization)
  Sender: FDA-Public Use
  Company Number: US-US-EMD SERONO, INC.-7063984

PATIENT
  Sex: Male

DRUGS (1)
  1. REBIF [Suspect]
     Indication: MULTIPLE SCLEROSIS
     Route: 058
     Dates: start: 20110124

REACTIONS (11)
  - ADVERSE DRUG REACTION [None]
  - CONVULSION [None]
  - INTRACRANIAL ANEURYSM [None]
  - PERSONALITY CHANGE [None]
  - PYREXIA [None]
  - CONSTIPATION [None]
  - BONE PAIN [None]
  - HEADACHE [None]
  - MULTIPLE SCLEROSIS RELAPSE [None]
  - COGNITIVE DISORDER [None]
  - THYROID DISORDER [None]
